FAERS Safety Report 11879676 (Version 2)
Quarter: 2016Q1

REPORT INFORMATION
  Report Type: Spontaneous
  Country: US (occurrence: US)
  Receive Date: 20151230
  Receipt Date: 20160208
  Transmission Date: 20160526
  Serious: No
  Sender: FDA-Public Use
  Company Number: US-AEGERION PHARMACEUTICAL INC.-AEGR002264

PATIENT

DRUGS (1)
  1. MYALEPT [Suspect]
     Active Substance: METRELEPTIN
     Indication: PRODUCT USED FOR UNKNOWN INDICATION
     Dosage: 100 ML, BID

REACTIONS (4)
  - Gastrointestinal pain [Unknown]
  - Bowel movement irregularity [Unknown]
  - Product used for unknown indication [Unknown]
  - Nausea [Unknown]

NARRATIVE: CASE EVENT DATE: 201510
